FAERS Safety Report 14979823 (Version 1)
Quarter: 2018Q2

REPORT INFORMATION
  Report Type: Spontaneous
  Country: US (occurrence: US)
  Receive Date: 20180516
  Receipt Date: 20180516
  Transmission Date: 20180711
  Serious: Yes (Other)
  Sender: FDA-Public Use
  Company Number: None

PATIENT
  Age: 52 Year
  Sex: Male
  Weight: 70.3 kg

DRUGS (2)
  1. DAPTOMYCIN. [Suspect]
     Active Substance: DAPTOMYCIN
     Indication: OSTEOMYELITIS
     Route: 041
     Dates: start: 20180505, end: 20180507
  2. INVANZ [Concomitant]
     Active Substance: ERTAPENEM SODIUM
     Dates: start: 20180505

REACTIONS (1)
  - Chills [None]

NARRATIVE: CASE EVENT DATE: 20180514
